FAERS Safety Report 5564292-8 (Version None)
Quarter: 2007Q4

REPORT INFORMATION
  Report Type: 
  Country: None (occurrence: None)
  Receive Date: 20071214
  Receipt Date: 20071214
  Transmission Date: 20080405
  Serious: Yes (Hospitalization)
  Sender: FDA-Public Use
  Company Number: None

PATIENT
  Age: 67 Year
  Sex: Male

DRUGS (3)
  1. TARCEVA [Suspect]
     Indication: MALIGNANT PALATE NEOPLASM
     Dosage: 150MG PO QD
     Route: 048
  2. INTRA ARTERIAL CISPLATIN [Concomitant]
  3. RADIATION THERAPY [Concomitant]

REACTIONS (4)
  - BACTERIAL INFECTION [None]
  - BLOOD CULTURE POSITIVE [None]
  - INFLUENZA [None]
  - UROBILIN URINE PRESENT [None]
